FAERS Safety Report 20810622 (Version 1)
Quarter: 2022Q2

REPORT INFORMATION
  Report Type: Spontaneous
  Country: US (occurrence: None)
  Receive Date: 20220510
  Receipt Date: 20220510
  Transmission Date: 20220721
  Serious: No
  Sender: FDA-Public Use
  Company Number: None

PATIENT
  Age: 63 Year
  Sex: Female
  Weight: 87.09 kg

DRUGS (25)
  1. IBRANCE [Suspect]
     Active Substance: PALBOCICLIB
     Indication: Breast cancer female
     Dosage: OTHER FREQUENCY : 21D ON 7D OFF;?
     Route: 048
  2. ACETAMINOPHEN [Concomitant]
     Active Substance: ACETAMINOPHEN
  3. ALBUTEROL [Concomitant]
     Active Substance: ALBUTEROL
  4. ALENDRONATE [Concomitant]
     Active Substance: ALENDRONATE SODIUM
  5. ASPERCREME NOS [Concomitant]
     Active Substance: MENTHOL\TROLAMINE SALICYLATE
  6. BIOTIN [Concomitant]
     Active Substance: BIOTIN
  7. BREO ELLIPTA [Concomitant]
     Active Substance: FLUTICASONE FUROATE\VILANTEROL TRIFENATATE
  8. CLONAZEPAM [Concomitant]
     Active Substance: CLONAZEPAM
  9. CORTISONE [Concomitant]
     Active Substance: CORTISONE
  10. DICLOFENAC [Concomitant]
     Active Substance: DICLOFENAC
  11. GABAPENTIN [Concomitant]
     Active Substance: GABAPENTIN
  12. HYDROCHLODONE-ACETAMINOPHEN [Concomitant]
  13. HYDROXYZINE [Concomitant]
     Active Substance: HYDROXYZINE HYDROCHLORIDE
  14. KELP [Concomitant]
     Active Substance: KELP
  15. LEVOTHYROXINE [Concomitant]
     Active Substance: LEVOTHYROXINE
  16. MAGNESIUM CITRATE [Concomitant]
     Active Substance: MAGNESIUM CITRATE
  17. MONTELUKAST [Concomitant]
     Active Substance: MONTELUKAST SODIUM
  18. MULTIVITAMIN [Concomitant]
  19. OMEPRAZOLE [Concomitant]
     Active Substance: OMEPRAZOLE
  20. PLAVIX [Concomitant]
     Active Substance: CLOPIDOGREL BISULFATE
  21. SYSTANE (HYPROMELLOSE 2910 (4000 MPA.S)) [Concomitant]
     Active Substance: HYPROMELLOSE 2910 (4000 MPA.S)
  22. TRAMADOL [Concomitant]
     Active Substance: TRAMADOL
  23. VENLAFAXINE [Concomitant]
     Active Substance: VENLAFAXINE HYDROCHLORIDE
  24. VENTOLIN [Concomitant]
     Active Substance: ALBUTEROL SULFATE
  25. VITAMIN B12 [Concomitant]
     Active Substance: CYANOCOBALAMIN

REACTIONS (1)
  - Disease progression [None]
